FAERS Safety Report 6668761-9 (Version None)
Quarter: 2010Q2

REPORT INFORMATION
  Report Type: 
  Country: None (occurrence: None)
  Receive Date: 20100406
  Receipt Date: 20100330
  Transmission Date: 20101027
  Serious: Yes (Death, Hospitalization)
  Sender: FDA-Public Use
  Company Number: FR-JNJFOC-20100205535

PATIENT
  Sex: Male

DRUGS (11)
  1. HALDOL [Suspect]
     Indication: DRUG USE FOR UNKNOWN INDICATION
     Route: 048
     Dates: start: 20080205, end: 20080218
  2. TERCIAN [Suspect]
     Indication: DRUG USE FOR UNKNOWN INDICATION
     Route: 048
     Dates: start: 20080206, end: 20080208
  3. CLOPIXOL [Suspect]
     Indication: DRUG USE FOR UNKNOWN INDICATION
     Route: 048
     Dates: start: 20080209, end: 20080218
  4. LOXAPAC [Suspect]
     Indication: DRUG USE FOR UNKNOWN INDICATION
     Route: 030
  5. NOZINAN [Suspect]
     Indication: DRUG USE FOR UNKNOWN INDICATION
     Route: 048
     Dates: start: 20080213, end: 20080218
  6. LEPTICUR [Suspect]
     Indication: DRUG USE FOR UNKNOWN INDICATION
     Route: 048
     Dates: start: 20080205, end: 20080218
  7. MEPRONIZINE [Suspect]
     Indication: INSOMNIA
     Route: 048
     Dates: start: 20080214, end: 20080218
  8. THERALENE [Suspect]
     Indication: INSOMNIA
     Route: 048
     Dates: start: 20080214, end: 20080218
  9. CLONAZEPAM [Suspect]
     Indication: INSOMNIA
     Route: 048
     Dates: start: 20080205, end: 20080218
  10. AMITRIPTYLINE HCL [Concomitant]
     Route: 065
  11. TERALITHE [Concomitant]
     Route: 065

REACTIONS (20)
  - ANURIA [None]
  - BIPOLAR I DISORDER [None]
  - BLOOD PRESSURE FLUCTUATION [None]
  - CARDIO-RESPIRATORY ARREST [None]
  - CONSTIPATION [None]
  - DYSARTHRIA [None]
  - DYSKINESIA [None]
  - DYSPNOEA [None]
  - ELECTROCARDIOGRAM QT PROLONGED [None]
  - EXTRAPYRAMIDAL DISORDER [None]
  - HYPOTHERMIA [None]
  - ILEUS PARALYTIC [None]
  - INSOMNIA [None]
  - INTESTINAL OBSTRUCTION [None]
  - MALAISE [None]
  - OVERDOSE [None]
  - PYREXIA [None]
  - TACHYCARDIA [None]
  - VISUAL ACUITY REDUCED [None]
  - WEIGHT DECREASED [None]
